FAERS Safety Report 24904631 (Version 2)
Quarter: 2025Q1

REPORT INFORMATION
  Report Type: Spontaneous
  Country: AT (occurrence: AT)
  Receive Date: 20250130
  Receipt Date: 20250304
  Transmission Date: 20250408
  Serious: Yes (Other)
  Sender: KYOWA
  Company Number: AT-KYOWAKIRIN-2025KK001360

PATIENT

DRUGS (1)
  1. POTELIGEO [Suspect]
     Active Substance: MOGAMULIZUMAB-KPKC
     Indication: Product used for unknown indication
     Route: 065
     Dates: start: 20241213

REACTIONS (3)
  - Tumour haemorrhage [Unknown]
  - Sepsis [Unknown]
  - Infusion related reaction [Unknown]

NARRATIVE: CASE EVENT DATE: 20241201
